FAERS Safety Report 14626367 (Version 1)
Quarter: 2018Q1

REPORT INFORMATION
  Report Type: Spontaneous
  Country: None (occurrence: US)
  Receive Date: 20180312
  Receipt Date: 20180312
  Transmission Date: 20180509
  Serious: No
  Sender: FDA-Public Use
  Company Number: US-XTTRIUM LABORATORIES, INC-2043528

PATIENT
  Sex: Male

DRUGS (1)
  1. SCRUB CARE EXIDINE -4 CHG [Suspect]
     Active Substance: CHLORHEXIDINE GLUCONATE
     Indication: SPINAL OPERATION
     Route: 061
     Dates: start: 20180107, end: 20180107

REACTIONS (2)
  - Urticaria [Unknown]
  - Skin irritation [Unknown]

NARRATIVE: CASE EVENT DATE: 20180107
